FAERS Safety Report 4760216-1 (Version None)
Quarter: 2005Q3

REPORT INFORMATION
  Report Type: 
  Country: None (occurrence: None)
  Receive Date: 20050902
  Receipt Date: 20050822
  Transmission Date: 20060218
  Serious: Yes (Other)
  Sender: FDA-Public Use
  Company Number: US-JNJFOC-20050805406

PATIENT
  Age: 50 Year
  Sex: Female
  Weight: 66.23 kg

DRUGS (8)
  1. TOPAMAX [Suspect]
     Route: 048
     Dates: start: 20031001
  2. TOPAMAX [Suspect]
     Route: 048
     Dates: start: 20031001
  3. TOPAMAX [Suspect]
     Indication: MIGRAINE
     Route: 048
     Dates: start: 20031001
  4. LEVOXYL [Concomitant]
     Route: 065
  5. EFFEXOR [Concomitant]
     Indication: DEPRESSION
     Route: 065
     Dates: start: 20030101
  6. CLARINEX [Concomitant]
     Route: 065
     Dates: start: 20010101
  7. PEPCID AC [Concomitant]
     Route: 065
     Dates: start: 20050606
  8. ZOMIG [Concomitant]
     Indication: MIGRAINE
     Route: 065

REACTIONS (3)
  - AUTOIMMUNE THYROIDITIS [None]
  - PRURITUS [None]
  - THERAPEUTIC RESPONSE DECREASED [None]
